FAERS Safety Report 7209872-9 (Version None)
Quarter: 2011Q1

REPORT INFORMATION
  Report Type: 
  Country: None (occurrence: None)
  Receive Date: 20110104
  Receipt Date: 20101231
  Transmission Date: 20110831
  Serious: Yes (Other)
  Sender: FDA-Public Use
  Company Number: FI-BRISTOL-MYERS SQUIBB COMPANY-15468721

PATIENT
  Age: 39 Year
  Sex: Male

DRUGS (1)
  1. ARIPIPRAZOLE [Suspect]

REACTIONS (1)
  - HYPOMANIA [None]
